FAERS Safety Report 15325954 (Version 1)
Quarter: 2018Q3

REPORT INFORMATION
  Report Type: Spontaneous
  Country: GB (occurrence: GB)
  Receive Date: 20180823
  Receipt Date: 20180823
  Transmission Date: 20181010
  Serious: Yes (Disabling)
  Sender: FDA-Public Use
  Company Number: None

PATIENT
  Age: 35 Year
  Sex: Female
  Weight: 62 kg

DRUGS (1)
  1. MIRENA [Suspect]
     Active Substance: LEVONORGESTREL
     Dates: start: 20130531, end: 20160505

REACTIONS (6)
  - Depression [None]
  - Anxiety [None]
  - Panic attack [None]
  - Anger [None]
  - Partner stress [None]
  - Mental disorder [None]

NARRATIVE: CASE EVENT DATE: 20180505
